FAERS Safety Report 6463812-9 (Version None)
Quarter: 2009Q4

REPORT INFORMATION
  Report Type: 
  Country: None (occurrence: None)
  Receive Date: 20091201
  Receipt Date: 20091123
  Transmission Date: 20100525
  Serious: Yes (Other)
  Sender: FDA-Public Use
  Company Number: BR-JNJFOC-20091107449

PATIENT
  Age: 34 Year
  Sex: Female
  Weight: 86 kg

DRUGS (1)
  1. LEVAQUIN [Suspect]
     Indication: URINARY TRACT INFECTION
     Route: 065
     Dates: start: 20091121, end: 20091121

REACTIONS (8)
  - BLOOD PRESSURE FLUCTUATION [None]
  - COLD SWEAT [None]
  - FORMICATION [None]
  - INSOMNIA [None]
  - MYDRIASIS [None]
  - PRURITUS [None]
  - SWELLING FACE [None]
  - TACHYCARDIA [None]
